FAERS Safety Report 16995167 (Version 1)
Quarter: 2019Q4

REPORT INFORMATION
  Report Type: Spontaneous
  Country: US (occurrence: US)
  Receive Date: 20191105
  Receipt Date: 20191105
  Transmission Date: 20200122
  Serious: Yes (Other)
  Sender: FDA-Public Use
  Company Number: US-LANNETT COMPANY, INC.-US-2019LAN001113

PATIENT
  Age: 71 Year
  Sex: Female

DRUGS (4)
  1. DRONABINOL. [Suspect]
     Active Substance: DRONABINOL
     Indication: DECREASED APPETITE
  2. DILAUDID [Suspect]
     Active Substance: HYDROMORPHONE HYDROCHLORIDE
     Indication: PRODUCT USED FOR UNKNOWN INDICATION
     Dosage: UNK
     Dates: end: 20191010
  3. DRONABINOL. [Suspect]
     Active Substance: DRONABINOL
     Indication: INSOMNIA
     Dosage: 2 PILLS, TID
     Route: 048
     Dates: start: 2014
  4. DRONABINOL. [Suspect]
     Active Substance: DRONABINOL
     Indication: PAIN

REACTIONS (2)
  - Anaphylactic shock [Unknown]
  - Drug ineffective [Unknown]

NARRATIVE: CASE EVENT DATE: 20191011
